FAERS Safety Report 6413278-X (Version None)
Quarter: 2009Q4

REPORT INFORMATION
  Report Type: 
  Country: None (occurrence: None)
  Receive Date: 20091026
  Receipt Date: 20091014
  Transmission Date: 20100525
  Serious: Yes (Life-Threatening, Hospitalization)
  Sender: FDA-Public Use
  Company Number: US-ROCHE-407866

PATIENT
  Sex: Male
  Weight: 44.3 kg

DRUGS (25)
  1. DACLIZUMAB [Suspect]
     Route: 042
     Dates: start: 20050328
  2. DACLIZUMAB [Suspect]
     Dosage: FREQUENCY: X1
     Route: 042
     Dates: end: 20050328
  3. ENALAPRIL MALEATE [Concomitant]
  4. COREG [Concomitant]
     Dates: start: 20050406
  5. RENAGEL [Concomitant]
  6. PHOSLO [Concomitant]
  7. PROTONIX [Concomitant]
  8. DULCOLAX [Concomitant]
  9. NIFEDIPINE [Concomitant]
     Dosage: PROCARDIA
     Dates: start: 20050406
  10. GANCICLOVIR [Concomitant]
  11. SEPTRA [Concomitant]
     Dates: start: 20050401
  12. CLONIDINE [Concomitant]
  13. MORPHINE [Concomitant]
  14. PHENERGAN HCL [Concomitant]
  15. KAYEXALATE [Concomitant]
  16. INSULIN [Concomitant]
  17. 1 CONCOMITANT DRUG [Concomitant]
     Dosage: DRUG REPORTED AS NACHO3.
  18. 1 CONCOMITANT DRUG [Concomitant]
     Dosage: DRUG REPORTED AS GAS EX.
  19. CLOTRIMAZOL [Concomitant]
  20. NYSTATIN [Concomitant]
     Dates: start: 20050406
  21. VALCYTE [Concomitant]
     Dates: start: 20050330
  22. PREVACID [Concomitant]
     Dates: start: 20050406
  23. PROGRAF [Concomitant]
     Dates: start: 20050328
  24. SODIUM BICARB [Concomitant]
     Dates: start: 20050421
  25. CELLCEPT [Concomitant]
     Dates: start: 20050328

REACTIONS (3)
  - GRAFT DYSFUNCTION [None]
  - HYPERKALAEMIA [None]
  - TRANSPLANT REJECTION [None]
